FAERS Safety Report 6407745-2 (Version None)
Quarter: 2009Q4

REPORT INFORMATION
  Report Type: 
  Country: None (occurrence: None)
  Receive Date: 20091015
  Receipt Date: 20091008
  Transmission Date: 20100525
  Serious: Yes (Hospitalization)
  Sender: FDA-Public Use
  Company Number: 6055053

PATIENT
  Age: 74 Year
  Sex: Female
  Weight: 47 kg

DRUGS (6)
  1. LEVOTHYROXINE SODIUM [Suspect]
     Indication: HYPOTHYROIDISM
     Dosage: 1 DOSAGE FORMS (1 DOSAGE FORMS, 1 IN 1 D) ORAL
     Route: 048
     Dates: start: 20090408, end: 20090507
  2. AMLODIPINE BESYLATE [Concomitant]
  3. ATARAX [Concomitant]
  4. DAFALGAN (500 MG, CAPSULE) (PARACETAMOL) [Concomitant]
  5. FOSAVANCE (TABLET) (ALENDRONIC ACID, COLECALCIFEROL) [Concomitant]
  6. ESOMEPRAZOLE MAGNESIUM [Concomitant]

REACTIONS (2)
  - FRACTURED SACRUM [None]
  - HYPERTHYROIDISM [None]
